FAERS Safety Report 12597302 (Version 11)
Quarter: 2018Q2

REPORT INFORMATION
  Report Type: Report from Study
  Country: IT (occurrence: IT)
  Receive Date: 20160726
  Receipt Date: 20180521
  Transmission Date: 20180711
  Serious: No
  Sender: FDA-Public Use
  Company Number: IT-JNJFOC-20160718032

PATIENT
  Age: 61 Year
  Sex: Female

DRUGS (12)
  1. TRABECTEDIN [Suspect]
     Active Substance: TRABECTEDIN
     Indication: OVARIAN CANCER RECURRENT
     Dosage: CYCLE 1 PRIOR TO BASELINE VISIT
     Route: 042
     Dates: start: 20160422, end: 20160506
  2. TRABECTEDIN [Suspect]
     Active Substance: TRABECTEDIN
     Indication: OVARIAN CANCER RECURRENT
     Dosage: 1.5 (UNITS UNSPECIFIED) AFTER BASELINE VISIT
     Route: 042
     Dates: start: 20160525, end: 20160525
  3. PLD [Suspect]
     Active Substance: DOXORUBICIN HYDROCHLORIDE
     Indication: OVARIAN CANCER RECURRENT
     Dosage: CYCLE 3
     Route: 042
     Dates: start: 20160616, end: 20160616
  4. PLD [Suspect]
     Active Substance: DOXORUBICIN HYDROCHLORIDE
     Indication: OVARIAN CANCER RECURRENT
     Dosage: CYCLE 4
     Route: 042
     Dates: start: 20160707, end: 20160707
  5. PLD [Suspect]
     Active Substance: DOXORUBICIN HYDROCHLORIDE
     Indication: OVARIAN CANCER RECURRENT
     Dosage: CYCLE 6, DOSE 43 (UNITS UNSPECIFIED)
     Route: 042
     Dates: start: 20160909, end: 20160909
  6. TRABECTEDIN [Suspect]
     Active Substance: TRABECTEDIN
     Indication: OVARIAN CANCER RECURRENT
     Dosage: CYCLE 3 1.55 (UNITS UNSPECIFIED)
     Route: 042
     Dates: start: 20160616, end: 20160616
  7. TRABECTEDIN [Suspect]
     Active Substance: TRABECTEDIN
     Indication: OVARIAN CANCER RECURRENT
     Dosage: CYCLE 6, DOSE 1.55 (UNITS UNSPECIFIED)
     Route: 042
     Dates: start: 20160909, end: 20160909
  8. PLD [Suspect]
     Active Substance: DOXORUBICIN HYDROCHLORIDE
     Indication: OVARIAN CANCER RECURRENT
     Dosage: DOSE 43 (UNITS NOT SPECIFIED) AFTER TO BASELINE VISIT
     Route: 042
     Dates: start: 20160525, end: 20160525
  9. TRABECTEDIN [Suspect]
     Active Substance: TRABECTEDIN
     Indication: OVARIAN CANCER RECURRENT
     Dosage: CYCLE 5, DOSE 1.55 (UNITS UNSPECIFIED)
     Route: 042
     Dates: start: 20160812, end: 20160812
  10. PLD [Suspect]
     Active Substance: DOXORUBICIN HYDROCHLORIDE
     Indication: OVARIAN CANCER RECURRENT
     Dosage: CYCLE 5, DOSE 43 (UNITS UNSPECIFIED)
     Route: 042
     Dates: start: 20160812, end: 20160812
  11. PLD [Suspect]
     Active Substance: DOXORUBICIN HYDROCHLORIDE
     Indication: OVARIAN CANCER RECURRENT
     Dosage: CYCLE 1 AND DOSE 50 (UNITS NOT SPECIFIED) PRIOR TO BASELINE VISIT
     Route: 042
     Dates: start: 20160422, end: 20160506
  12. TRABECTEDIN [Suspect]
     Active Substance: TRABECTEDIN
     Indication: OVARIAN CANCER RECURRENT
     Dosage: CYCLE 4 1.55 (UNITS UNSPECIFIED)
     Route: 042
     Dates: start: 20160707, end: 20160707

REACTIONS (12)
  - Thrombocytopenia [Recovered/Resolved]
  - Hypertransaminasaemia [Recovered/Resolved]
  - Fatigue [Recovered/Resolved]
  - Leukopenia [Recovered/Resolved]
  - Neutropenia [Recovered/Resolved]
  - Anaemia [Recovered/Resolved]
  - Leukopenia [Recovered/Resolved]
  - Thrombocytopenia [Recovered/Resolved]
  - Neutropenia [Recovered/Resolved]
  - Neutropenia [Recovered/Resolved]
  - Leukopenia [Recovered/Resolved]
  - Neutropenia [Recovered/Resolved]

NARRATIVE: CASE EVENT DATE: 20160429
